FAERS Safety Report 24630535 (Version 1)
Quarter: 2024Q4

REPORT INFORMATION
  Report Type: Spontaneous
  Country: FR (occurrence: FR)
  Receive Date: 20241118
  Receipt Date: 20241118
  Transmission Date: 20250114
  Serious: Yes (Hospitalization)
  Sender: HIKMA
  Company Number: FR-HIKMA PHARMACEUTICALS-FR-H14001-24-10450

PATIENT
  Age: 13 Year
  Sex: Female
  Weight: 63 kg

DRUGS (10)
  1. MORPHINE SULFATE [Suspect]
     Active Substance: MORPHINE SULFATE
     Indication: Pseudarthrosis
     Dosage: 10 MILLIGRAM, QD
     Route: 048
     Dates: start: 20241018
  2. DAFALGAN [Suspect]
     Active Substance: ACETAMINOPHEN
     Indication: Pseudarthrosis
     Dosage: 4 GRAM, QD
     Route: 065
     Dates: start: 20241018, end: 20241023
  3. HYDROXYZINE HYDROCHLORIDE [Suspect]
     Active Substance: HYDROXYZINE HYDROCHLORIDE
     Indication: Pseudarthrosis
     Dosage: 50 MILLIGRAM, QD
     Route: 048
     Dates: start: 20241020, end: 20241022
  4. KETOPROFEN [Suspect]
     Active Substance: KETOPROFEN
     Indication: Pseudarthrosis
     Dosage: 100 MILLIGRAM, QD
     Route: 048
     Dates: start: 20241019, end: 20241021
  5. LINEZOLID [Suspect]
     Active Substance: LINEZOLID
     Indication: Pseudarthrosis
     Dosage: 1.2 GRAM, QD
     Route: 042
     Dates: start: 20241018, end: 20241022
  6. LOVENOX [Suspect]
     Active Substance: ENOXAPARIN SODIUM
     Indication: Pseudarthrosis
     Dosage: 4000 INTERNATIONAL UNIT, QD
     Route: 058
     Dates: start: 20241018
  7. NEFOPAM HYDROCHLORIDE [Suspect]
     Active Substance: NEFOPAM HYDROCHLORIDE
     Indication: Pseudarthrosis
     Dosage: 80 MILLIGRAM, QD
     Route: 065
     Dates: start: 20241018, end: 20241022
  8. ONDANSETRON [Suspect]
     Active Substance: ONDANSETRON
     Indication: Pseudarthrosis
     Dosage: 12 MILLIGRAM, QD
     Route: 042
     Dates: start: 20241018, end: 20241023
  9. PIPERACILLIN [Suspect]
     Active Substance: PIPERACILLIN
     Indication: Pseudarthrosis
     Dosage: 1.6 GRAM, QD
     Route: 042
     Dates: start: 20241018, end: 20241022
  10. TAZOBACTAM [Suspect]
     Active Substance: TAZOBACTAM
     Indication: Pseudarthrosis
     Dosage: 1.6 GRAM, QD
     Route: 042
     Dates: start: 20241018, end: 20241022

REACTIONS (1)
  - Hepatic cytolysis [Recovering/Resolving]

NARRATIVE: CASE EVENT DATE: 20241022
